FAERS Safety Report 8554640-9 (Version None)
Quarter: 2012Q3

REPORT INFORMATION
  Report Type: 
  Country: None (occurrence: None)
  Receive Date: 20120731
  Receipt Date: 20120723
  Transmission Date: 20120928
  Serious: Yes (Other)
  Sender: FDA-Public Use
  Company Number: CA-ELI_LILLY_AND_COMPANY-CA201207007806

PATIENT
  Age: 74 Year
  Sex: Female

DRUGS (9)
  1. FORTEO [Suspect]
     Indication: OSTEOPOROSIS
     Dosage: 20 UG, QD
     Route: 058
     Dates: start: 20110509
  2. LIPITOR [Concomitant]
  3. METFORMIN HYDROCHLORIDE [Concomitant]
  4. ASPIRIN [Concomitant]
     Dosage: 80 UNK, UNK
  5. ELAVIL [Concomitant]
  6. CALCIUM D [Concomitant]
  7. PANTOPRAZOLE SODIUM [Concomitant]
  8. SYNTHROID [Concomitant]
  9. LYRICA [Concomitant]
     Dosage: 150 MG, UNK

REACTIONS (3)
  - FALL [None]
  - JOINT INJURY [None]
  - TENDON INJURY [None]
